FAERS Safety Report 23758322 (Version 1)
Quarter: 2024Q2

REPORT INFORMATION
  Report Type: Spontaneous
  Country: US (occurrence: US)
  Receive Date: 20240418
  Receipt Date: 20240418
  Transmission Date: 20240716
  Serious: No
  Sender: FDA-Public Use
  Company Number: US-TEVA-VS-3173175

PATIENT
  Sex: Female

DRUGS (1)
  1. TRI-LO-SPRINTEC [Suspect]
     Active Substance: ETHINYL ESTRADIOL\NORGESTIMATE
     Indication: Contraception
     Dosage: STRENGTH: 0.180 MG / 0.025 MG; 0.215 MG / 0.025 MG; 0.250 MG / 0.025 MG
     Route: 065
     Dates: start: 202310

REACTIONS (2)
  - Drug ineffective [Unknown]
  - Pregnancy [Unknown]
